FAERS Safety Report 10388226 (Version 1)
Quarter: 2014Q3

REPORT INFORMATION
  Report Type: Spontaneous
  Country: TR (occurrence: TR)
  Receive Date: 20140815
  Receipt Date: 20140815
  Transmission Date: 20150326
  Serious: Yes (Other)
  Sender: FDA-Public Use
  Company Number: ALCN2014TR004459

PATIENT
  Age: 8 Month
  Sex: Female

DRUGS (3)
  1. VIGAMOX [Suspect]
     Active Substance: MOXIFLOXACIN HYDROCHLORIDE
     Indication: POSTOPERATIVE CARE
     Dosage: 1 DF, QID
     Route: 047
  2. MAXIDEX                            /00207701/ [Concomitant]
     Indication: POSTOPERATIVE CARE
     Dosage: 1 DF, TID
     Route: 047
  3. ARTIFICIAL TEARS                   /00880201/ [Concomitant]
     Indication: POSTOPERATIVE CARE
     Dosage: 1 DF, QH
     Route: 047

REACTIONS (1)
  - Off label use [Recovering/Resolving]
